FAERS Safety Report 7409195-9 (Version None)
Quarter: 2011Q2

REPORT INFORMATION
  Report Type: 
  Country: None (occurrence: None)
  Receive Date: 20110412
  Receipt Date: 20110407
  Transmission Date: 20111010
  Serious: Yes (Hospitalization)
  Sender: FDA-Public Use
  Company Number: A0921783A

PATIENT
  Age: 63 Year
  Sex: Female

DRUGS (5)
  1. ALLI [Suspect]
     Indication: WEIGHT LOSS DIET
     Route: 048
     Dates: end: 20100721
  2. OXYCODONE [Concomitant]
  3. VERAPAMIL [Concomitant]
  4. VICODIN [Concomitant]
  5. OXYCONTIN [Concomitant]

REACTIONS (18)
  - PAIN [None]
  - COLITIS [None]
  - COLONIC OBSTRUCTION [None]
  - ABDOMINAL DISTENSION [None]
  - CONDITION AGGRAVATED [None]
  - ASTHENIA [None]
  - CONSTIPATION [None]
  - GASTROINTESTINAL INFECTION [None]
  - ABDOMINAL PAIN [None]
  - DEFAECATION URGENCY [None]
  - COLECTOMY [None]
  - MALAISE [None]
  - DIVERTICULITIS [None]
  - FREQUENT BOWEL MOVEMENTS [None]
  - BACK PAIN [None]
  - COLOSTOMY [None]
  - DECREASED APPETITE [None]
  - VOMITING [None]
